FAERS Safety Report 7180899-9 (Version None)
Quarter: 2010Q4

REPORT INFORMATION
  Report Type: 
  Country: None (occurrence: None)
  Receive Date: 20101221
  Receipt Date: 20100410
  Transmission Date: 20110411
  Serious: No
  Sender: FDA-Public Use
  Company Number: US-AMGEN-TCS405158

PATIENT

DRUGS (3)
  1. ENBREL [Suspect]
     Indication: PSORIATIC ARTHROPATHY
     Dosage: 50 MG, QWK
     Route: 058
     Dates: start: 20100101
  2. HYDROXYCHLOROQUINE [Concomitant]
     Dosage: 200 MG, BID
  3. METHOTREXATE [Concomitant]
     Dosage: 2.5 MG, QWK
     Route: 048

REACTIONS (1)
  - INJECTION SITE PAIN [None]
